FAERS Safety Report 8916825 (Version 2)
Quarter: 2013Q2

REPORT INFORMATION
  Report Type: Report from Study
  Country: NL (occurrence: NL)
  Receive Date: 20121120
  Receipt Date: 20130603
  Transmission Date: 20140414
  Serious: Yes (Hospitalization)
  Sender: FDA-Public Use
  Company Number: NL-ASTRAZENECA-2012SE85796

PATIENT
  Age: 146 Day
  Sex: Male
  Weight: 3.8 kg

DRUGS (1)
  1. SYNAGIS [Suspect]
     Indication: PREMATURE BABY
     Route: 030
     Dates: start: 20120916

REACTIONS (2)
  - Respiratory syncytial virus test positive [Recovered/Resolved]
  - Bronchial secretion retention [Recovered/Resolved]
